FAERS Safety Report 9384714 (Version 1)
Quarter: 2013Q3

REPORT INFORMATION
  Report Type: Report from Study
  Country: CA (occurrence: CA)
  Receive Date: 20130705
  Receipt Date: 20130705
  Transmission Date: 20140515
  Serious: Yes (Hospitalization, Other)
  Sender: FDA-Public Use
  Company Number: CA-JNJFOC-20130701469

PATIENT
  Age: 59 Year
  Sex: Male
  Weight: 84.5 kg

DRUGS (4)
  1. REMICADE [Suspect]
     Indication: COLITIS ULCERATIVE
     Route: 042
     Dates: start: 2010
  2. ASACOL [Concomitant]
     Route: 065
  3. NORVASC [Concomitant]
     Route: 065
  4. LIPIDIL MICRO [Concomitant]
     Route: 065

REACTIONS (2)
  - Calculus urinary [Unknown]
  - Pain [Unknown]
